FAERS Safety Report 10208642 (Version 3)
Quarter: 2015Q2

REPORT INFORMATION
  Report Type: Report from Study
  Country: JP (occurrence: JP)
  Receive Date: 20140530
  Receipt Date: 20150423
  Transmission Date: 20150821
  Serious: Yes (Death, Hospitalization)
  Sender: FDA-Public Use
  Company Number: JP-BAYER-2014-077162

PATIENT
  Age: 61 Year
  Sex: Male
  Weight: 65 kg

DRUGS (1)
  1. STIVARGA [Suspect]
     Active Substance: REGORAFENIB
     Indication: COLON CANCER
     Dosage: 160 MG, QD ON FOR 3 WEEKS AND OFF FOR 1 WEEK
     Route: 048
     Dates: start: 20140514, end: 20140519

REACTIONS (7)
  - Blood lactate dehydrogenase increased [Recovering/Resolving]
  - Malaise [Recovered/Resolved]
  - Decreased appetite [Recovered/Resolved]
  - White blood cell count increased [Recovered/Resolved]
  - Neutrophil count increased [Recovered/Resolved]
  - Blood bilirubin increased [Recovered/Resolved]
  - Rectal cancer [Fatal]

NARRATIVE: CASE EVENT DATE: 20140519
